FAERS Safety Report 8305145-1 (Version None)
Quarter: 2012Q2

REPORT INFORMATION
  Report Type: 
  Country: None (occurrence: None)
  Receive Date: 20120423
  Receipt Date: 20100526
  Transmission Date: 20120825
  Serious: Yes (Other)
  Sender: FDA-Public Use
  Company Number: US-B.I. PHARMACEUTICALS,INC./RIDGEFIELD-2010-BP-04992BP

PATIENT
  Age: 45 Year
  Sex: Female
  Weight: 66.55 kg

DRUGS (4)
  1. DULCOLAX [Suspect]
     Indication: COLONOSCOPY
     Dosage: 10 MG
     Route: 048
     Dates: start: 20100404, end: 20100405
  2. CALCIUM CARBONATE [Concomitant]
     Dates: start: 20100301
  3. HALFLYTELY [Suspect]
     Indication: COLONOSCOPY
     Route: 048
  4. MULTI-VITAMIN [Concomitant]
     Dates: start: 20100301

REACTIONS (3)
  - ABDOMINAL DISTENSION [None]
  - COLITIS ISCHAEMIC [None]
  - MUSCLE SPASMS [None]
